FAERS Safety Report 17144955 (Version 1)
Quarter: 2019Q4

REPORT INFORMATION
  Report Type: Spontaneous
  Country: US (occurrence: US)
  Receive Date: 20191212
  Receipt Date: 20191212
  Transmission Date: 20200122
  Serious: No
  Sender: FDA-Public Use
  Company Number: US-SA-2019SA340206

PATIENT
  Sex: Male

DRUGS (7)
  1. ASPIR 81 [Concomitant]
     Active Substance: ASPIRIN
  2. LORATA-DINE D [LORATADINE;PSEUDOEPHEDRINE SULFATE] [Concomitant]
     Dosage: UNK (ER 24H)
  3. ADVAIR HFA [Concomitant]
     Active Substance: FLUTICASONE PROPIONATE\SALMETEROL XINAFOATE
     Dosage: UNK (BLST W/DEV)
  4. PREDNISONE. [Concomitant]
     Active Substance: PREDNISONE
  5. BREO ELLIPTA [Concomitant]
     Active Substance: FLUTICASONE FUROATE\VILANTEROL TRIFENATATE
     Dosage: UNK (BLST W/DEV)
  6. DUPIXENT [Suspect]
     Active Substance: DUPILUMAB
     Indication: CHRONIC RHINOSINUSITIS WITH NASAL POLYPS
     Dosage: 1 DF, QOW (1 SYRINGE EVENRY 2 WEEKS)
     Route: 058
  7. MONTELUKAST SODIUM. [Concomitant]
     Active Substance: MONTELUKAST SODIUM

REACTIONS (6)
  - Pain in jaw [Unknown]
  - Condition aggravated [Unknown]
  - Parosmia [Unknown]
  - Sinus pain [Unknown]
  - Facial pain [Unknown]
  - Taste disorder [Unknown]
